FAERS Safety Report 13595581 (Version 2)
Quarter: 2018Q1

REPORT INFORMATION
  Report Type: Spontaneous
  Country: US (occurrence: US)
  Receive Date: 20170531
  Receipt Date: 20180310
  Transmission Date: 20180508
  Serious: No
  Sender: FDA-Public Use
  Company Number: US-JNJFOC-20170420448

PATIENT
  Age: 67 Year
  Sex: Male
  Weight: 58.97 kg

DRUGS (1)
  1. TYLENOL REGULAR STRENGTH [Suspect]
     Active Substance: ACETAMINOPHEN
     Indication: PROCEDURAL PAIN
     Route: 048
     Dates: start: 20170417, end: 20170417

REACTIONS (3)
  - Product use complaint [Unknown]
  - Incorrect dose administered [Unknown]
  - Product size issue [Unknown]

NARRATIVE: CASE EVENT DATE: 20170417
